FAERS Safety Report 15487643 (Version 7)
Quarter: 2020Q1

REPORT INFORMATION
  Report Type: Spontaneous
  Country: JP (occurrence: JP)
  Receive Date: 20181011
  Receipt Date: 20200219
  Transmission Date: 20200409
  Serious: Yes (Hospitalization)
  Sender: FDA-Public Use
  Company Number: JP-LUNDBECK-DKLU2054678

PATIENT
  Age: 4 Year
  Sex: Male
  Weight: 15 kg

DRUGS (22)
  1. L CARTIN [Concomitant]
     Active Substance: LEVOCARNITINE HYDROCHLORIDE
     Indication: INFANTILE SPASMS
     Route: 065
  2. ROZEREM [Concomitant]
     Active Substance: RAMELTEON
     Indication: PRODUCT USED FOR UNKNOWN INDICATION
     Route: 065
  3. GASMOTIN [Concomitant]
     Active Substance: MOSAPRIDE CITRATE
     Indication: PRODUCT USED FOR UNKNOWN INDICATION
     Route: 065
  4. PULMICORT TURBUHALER [Concomitant]
     Active Substance: BUDESONIDE
     Indication: PRODUCT USED FOR UNKNOWN INDICATION
     Route: 065
  5. MOVICOL [Concomitant]
     Active Substance: POLYETHYLENE GLYCOL 3350\POTASSIUM CHLORIDE\SODIUM BICARBONATE\SODIUM CHLORIDE
     Indication: PRODUCT USED FOR UNKNOWN INDICATION
     Route: 065
  6. URALYT [Concomitant]
     Active Substance: POTASSIUM CITRATE\TRISODIUM CITRATE DIHYDRATE
     Indication: PRODUCT USED FOR UNKNOWN INDICATION
     Route: 065
     Dates: start: 20190410
  7. SABRIL [Suspect]
     Active Substance: VIGABATRIN
     Indication: INFANTILE SPASMS
     Dosage: 2100 MG/DAY, BID
     Route: 048
     Dates: start: 20180804, end: 20180904
  8. SABRIL [Suspect]
     Active Substance: VIGABATRIN
     Dosage: 1300 MG/DAY, BID
     Route: 048
     Dates: start: 20180705, end: 20180803
  9. VALPROATE NA [Concomitant]
     Active Substance: VALPROATE SODIUM
     Indication: PRODUCT USED FOR UNKNOWN INDICATION
     Route: 065
  10. HERBAL NOS [Concomitant]
     Active Substance: HERBALS
     Indication: PRODUCT USED FOR UNKNOWN INDICATION
     Route: 065
     Dates: start: 20190424
  11. VIGABATRIN. [Concomitant]
     Active Substance: VIGABATRIN
     Indication: INFANTILE SPASMS
     Route: 065
  12. LEVETIRACETAM. [Concomitant]
     Active Substance: LEVETIRACETAM
     Indication: PRODUCT USED FOR UNKNOWN INDICATION
     Route: 065
  13. ONON [Concomitant]
     Active Substance: PRANLUKAST
     Indication: PRODUCT USED FOR UNKNOWN INDICATION
     Route: 065
  14. SABRIL [Suspect]
     Active Substance: VIGABATRIN
     Dosage: 750 MG/DAY, BID
     Route: 048
     Dates: start: 20190426, end: 20190611
  15. SABRIL [Suspect]
     Active Substance: VIGABATRIN
     Dosage: 1300 MG/DAY, BID
     Route: 048
     Dates: start: 20180905, end: 20190425
  16. PHENOBAL [Concomitant]
     Active Substance: PHENOBARBITAL
     Indication: INFANTILE SPASMS
     Route: 065
  17. E KEPPRA [Concomitant]
     Active Substance: LEVETIRACETAM
     Indication: INFANTILE SPASMS
     Route: 065
  18. SABRIL [Suspect]
     Active Substance: VIGABATRIN
     Dosage: 650 MG/DAY, BID
     Route: 048
     Dates: start: 20180618, end: 20180704
  19. VIMPAT [Concomitant]
     Active Substance: LACOSAMIDE
     Indication: INFANTILE SPASMS
     Route: 065
  20. DEPAKENE [Concomitant]
     Active Substance: VALPROIC ACID
     Indication: INFANTILE SPASMS
     Route: 065
  21. PRANLUKAST [Concomitant]
     Active Substance: PRANLUKAST
     Indication: ASTHMA
     Route: 065
  22. PHENOBARBITAL. [Concomitant]
     Active Substance: PHENOBARBITAL
     Indication: PRODUCT USED FOR UNKNOWN INDICATION
     Route: 065

REACTIONS (4)
  - Oral discharge [Recovering/Resolving]
  - Constipation [Recovering/Resolving]
  - Asthma [Recovering/Resolving]
  - Dyspepsia [Recovering/Resolving]

NARRATIVE: CASE EVENT DATE: 20180804
